FAERS Safety Report 10519002 (Version 1)
Quarter: 2014Q4

REPORT INFORMATION
  Report Type: Spontaneous
  Country: US (occurrence: None)
  Receive Date: 20141014
  Receipt Date: 20141014
  Transmission Date: 20150528
  Serious: Yes (Hospitalization)
  Sender: FDA-Public Use
  Company Number: None

PATIENT
  Age: 27 Year
  Sex: Male
  Weight: 70.2 kg

DRUGS (1)
  1. METHYLPHENIDATE [Suspect]
     Active Substance: METHYLPHENIDATE
     Indication: SCHIZOAFFECTIVE DISORDER
     Dates: start: 20100924, end: 20140709

REACTIONS (2)
  - Hallucination [None]
  - Psychotic disorder [None]

NARRATIVE: CASE EVENT DATE: 20140710
